FAERS Safety Report 7977166-X (Version None)
Quarter: 2011Q4

REPORT INFORMATION
  Report Type: 
  Country: None (occurrence: None)
  Receive Date: 20111213
  Receipt Date: 20111031
  Transmission Date: 20120403
  Serious: No
  Sender: FDA-Public Use
  Company Number: US-AMGEN-USASP2011056664

PATIENT
  Sex: Male

DRUGS (5)
  1. ENBREL [Suspect]
     Indication: RHEUMATOID ARTHRITIS
     Dosage: 50 MG, QWK
     Dates: start: 20100101, end: 20110701
  2. ORENCIA [Concomitant]
     Dosage: UNK
  3. METHOTREXATE [Concomitant]
     Dosage: 6 MG, UNK
     Dates: start: 20100101
  4. HUMIRA [Concomitant]
     Dosage: UNK
  5. SULFASALAZINE [Concomitant]
     Dosage: 6 MG, UNK
     Dates: start: 20100101

REACTIONS (2)
  - THERAPEUTIC RESPONSE DECREASED [None]
  - RHEUMATOID ARTHRITIS [None]
